FAERS Safety Report 7902713-3 (Version None)
Quarter: 2011Q4

REPORT INFORMATION
  Report Type: 
  Country: None (occurrence: None)
  Receive Date: 20111108
  Receipt Date: 20111104
  Transmission Date: 20120403
  Serious: Yes (Hospitalization)
  Sender: FDA-Public Use
  Company Number: BE-ABBOTT-11P-013-0871523-00

PATIENT
  Sex: Female

DRUGS (3)
  1. MESTINON [Concomitant]
     Indication: MYASTHENIA GRAVIS
  2. CLARITHROMYCIN [Suspect]
     Indication: CAMPYLOBACTER INTESTINAL INFECTION
  3. CYCLOSPORINE [Concomitant]
     Indication: RENAL TRANSPLANT

REACTIONS (4)
  - DYSPNOEA [None]
  - MYASTHENIA GRAVIS [None]
  - DRUG EFFECT DECREASED [None]
  - MALAISE [None]
